FAERS Safety Report 14260234 (Version 2)
Quarter: 2018Q1

REPORT INFORMATION
  Report Type: Spontaneous
  Country: US (occurrence: US)
  Receive Date: 20171207
  Receipt Date: 20180105
  Transmission Date: 20180508
  Serious: No
  Sender: FDA-Public Use
  Company Number: US-PFIZER INC-2017521195

PATIENT
  Age: 58 Year
  Sex: Female

DRUGS (1)
  1. IBRANCE [Suspect]
     Active Substance: PALBOCICLIB
     Indication: BREAST CANCER FEMALE
     Dosage: 125 MG, 1X/DAY
     Route: 048

REACTIONS (5)
  - Stomatitis [Unknown]
  - Alopecia [Unknown]
  - White blood cell count decreased [Unknown]
  - Onychoclasis [Unknown]
  - Fatigue [Unknown]

NARRATIVE: CASE EVENT DATE: 20171104
